FAERS Safety Report 4648021-8 (Version None)
Quarter: 2005Q2

REPORT INFORMATION
  Report Type: 
  Country: None (occurrence: None)
  Receive Date: 20050331
  Receipt Date: 20050117
  Transmission Date: 20051028
  Serious: No
  Sender: FDA-Public Use
  Company Number: 05P-163-0286874-00

PATIENT
  Age: 54 Year
  Sex: Female
  Weight: 65.7716 kg

DRUGS (8)
  1. HUMIRA [Suspect]
     Indication: RHEUMATOID ARTHRITIS
     Dosage: 40 MG, 1 IN 2 WK, SUBCUTANEOUS
     Route: 058
     Dates: start: 20040701
  2. PREDNISONE TAB [Concomitant]
  3. PROVELLA-14 [Concomitant]
  4. PRAVASTATIN SODIUM [Concomitant]
  5. METHOTREXATE SODIUM [Concomitant]
  6. VENLAFAXINE HCL [Concomitant]
  7. TOPIRAMATE [Concomitant]
  8. FOLIC ACID [Concomitant]

REACTIONS (1)
  - SINUS HEADACHE [None]
